FAERS Safety Report 24674373 (Version 1)
Quarter: 2024Q4

REPORT INFORMATION
  Report Type: Spontaneous
  Country: SI (occurrence: SI)
  Receive Date: 20241128
  Receipt Date: 20241128
  Transmission Date: 20250114
  Serious: Yes (Hospitalization, Other)
  Sender: ASTELLAS
  Company Number: SI-ASTELLAS-2024-AER-020652

PATIENT
  Age: 74 Year
  Sex: Male

DRUGS (4)
  1. ENFORTUMAB VEDOTIN [Suspect]
     Active Substance: ENFORTUMAB VEDOTIN
     Indication: Bladder transitional cell carcinoma
     Dosage: 1A ADMINISTRATION
     Route: 065
     Dates: start: 202406
  2. ENFORTUMAB VEDOTIN [Suspect]
     Active Substance: ENFORTUMAB VEDOTIN
     Dosage: 1B APPLICATION OF EV
     Route: 065
     Dates: start: 20240620
  3. ENFORTUMAB VEDOTIN [Suspect]
     Active Substance: ENFORTUMAB VEDOTIN
     Dosage: 1C APPLICATION OF EV
     Route: 065
     Dates: start: 20240627
  4. ENFORTUMAB VEDOTIN [Suspect]
     Active Substance: ENFORTUMAB VEDOTIN
     Dosage: 2C EV APPLICATION
     Route: 065
     Dates: start: 202407

REACTIONS (3)
  - Pneumonitis [Recovering/Resolving]
  - Pneumocystis jirovecii infection [Recovering/Resolving]
  - Diarrhoea [Recovered/Resolved]

NARRATIVE: CASE EVENT DATE: 20240620
